FAERS Safety Report 18594079 (Version 4)
Quarter: 2021Q2

REPORT INFORMATION
  Report Type: Report from Study
  Country: US (occurrence: US)
  Receive Date: 20201209
  Receipt Date: 20210604
  Transmission Date: 20210717
  Serious: Yes (Other)
  Sender: FDA-Public Use
  Company Number: NVSC2020US322619

PATIENT
  Age: 57 Year
  Sex: Female

DRUGS (1)
  1. ENTRESTO [Suspect]
     Active Substance: SACUBITRIL\VALSARTAN
     Indication: CARDIAC FAILURE
     Dosage: 24.26 MG, BID (50 MG)
     Route: 048
     Dates: start: 202011

REACTIONS (12)
  - Diverticulitis [Recovering/Resolving]
  - Peripheral swelling [Unknown]
  - Weight decreased [Unknown]
  - Dyspnoea [Unknown]
  - Thrombosis [Unknown]
  - Chest pain [Unknown]
  - Haematochezia [Recovering/Resolving]
  - Depressed mood [Unknown]
  - Asthenia [Unknown]
  - Heart rate irregular [Unknown]
  - Urine flow decreased [Unknown]
  - Pain in extremity [Unknown]

NARRATIVE: CASE EVENT DATE: 20201127
